FAERS Safety Report 12234782 (Version 1)
Quarter: 2016Q2

REPORT INFORMATION
  Report Type: Spontaneous
  Country: IT (occurrence: IT)
  Receive Date: 20160404
  Receipt Date: 20160404
  Transmission Date: 20160815
  Serious: Yes (Other)
  Sender: FDA-Public Use
  Company Number: IT-TEVA-647633ACC

PATIENT
  Age: 47 Year
  Sex: Female

DRUGS (1)
  1. SEASONIQUE [Suspect]
     Active Substance: ETHINYL ESTRADIOL\LEVONORGESTREL
     Indication: ORAL CONTRACEPTION
     Dosage: 1 DOSAGE FORMS DAILY; 1 DF DAILY; FORM STRENGTH: 150 MICROGRAMMI/30 MICROGRAMMI+10 MICROGRAMMI
     Route: 048
     Dates: start: 20160305, end: 20160319

REACTIONS (3)
  - Tremor [Recovered/Resolved]
  - Arrhythmia [Recovered/Resolved]
  - Disturbance in attention [Recovered/Resolved]

NARRATIVE: CASE EVENT DATE: 20160305
